FAERS Safety Report 10438809 (Version 2)
Quarter: 2014Q3

REPORT INFORMATION
  Report Type: Spontaneous
  Country: US (occurrence: US)
  Receive Date: 20140908
  Receipt Date: 20140908
  Transmission Date: 20150326
  Serious: No
  Sender: FDA-Public Use
  Company Number: US-BRISTOL-MYERS SQUIBB COMPANY-20588794

PATIENT
  Age: 57 Year
  Sex: Female
  Weight: 59.86 kg

DRUGS (6)
  1. ALEVE [Concomitant]
     Active Substance: NAPROXEN SODIUM
     Indication: ARTHRALGIA
  2. ZYPREXA [Concomitant]
     Active Substance: OLANZAPINE
  3. ABILIFY [Suspect]
     Active Substance: ARIPIPRAZOLE
     Indication: SCHIZOPHRENIA
     Dates: start: 201310
  4. ALEVE [Concomitant]
     Active Substance: NAPROXEN SODIUM
     Indication: TOOTHACHE
  5. HALDOL [Concomitant]
     Active Substance: HALOPERIDOL
  6. ABILIFY [Suspect]
     Active Substance: ARIPIPRAZOLE
     Indication: AFFECTIVE DISORDER
     Dates: start: 201310

REACTIONS (2)
  - Weight increased [Unknown]
  - Off label use [Unknown]
